FAERS Safety Report 14239228 (Version 2)
Quarter: 2017Q4

REPORT INFORMATION
  Report Type: Spontaneous
  Country: GB (occurrence: GB)
  Receive Date: 20171130
  Receipt Date: 20171229
  Transmission Date: 20180321
  Serious: Yes (Other)
  Sender: FDA-Public Use
  Company Number: GB-ALIMERA SCIENCES LIMITED-GB-FL-2017-003662

PATIENT

DRUGS (1)
  1. ILUVIEN [Suspect]
     Active Substance: FLUOCINOLONE ACETONIDE
     Indication: DIABETIC RETINAL OEDEMA
     Dosage: 0.25 MG, QD, LEFT
     Route: 031
     Dates: start: 20170615

REACTIONS (2)
  - Intraocular pressure increased [Recovered/Resolved]
  - Angle closure glaucoma [Unknown]

NARRATIVE: CASE EVENT DATE: 20170620
